FAERS Safety Report 10384295 (Version 1)
Quarter: 2014Q3

REPORT INFORMATION
  Report Type: Spontaneous
  Country: US (occurrence: None)
  Receive Date: 20140812
  Receipt Date: 20140812
  Transmission Date: 20150326
  Serious: Yes (Hospitalization, Other)
  Sender: FDA-Public Use
  Company Number: 2014JUB00076

PATIENT
  Age: 78 Year
  Sex: Male

DRUGS (6)
  1. TRAZODONE [Concomitant]
     Active Substance: TRAZODONE HYDROCHLORIDE
  2. CARBIDOPA-LEVADOPA [Concomitant]
  3. DONEPEZIL [Suspect]
     Active Substance: DONEPEZIL
  4. METOPROLOL XL [Concomitant]
     Active Substance: METOPROLOL
  5. WARFARIN [Concomitant]
     Active Substance: WARFARIN
  6. RIVASTIGMINE [Suspect]
     Active Substance: RIVASTIGMINE

REACTIONS (4)
  - Blood cholinesterase decreased [None]
  - Toxicity to various agents [None]
  - Encephalopathy [None]
  - Sinus bradycardia [None]
